FAERS Safety Report 15021930 (Version 1)
Quarter: 2018Q2

REPORT INFORMATION
  Report Type: Spontaneous
  Country: US (occurrence: US)
  Receive Date: 20180618
  Receipt Date: 20180618
  Transmission Date: 20180711
  Serious: Yes (Other)
  Sender: FDA-Public Use
  Company Number: US-SA-2018SA147524

PATIENT
  Age: 47 Year
  Sex: Female
  Weight: 54 kg

DRUGS (2)
  1. TAXOTERE [Suspect]
     Active Substance: DOCETAXEL
     Dosage: 20 UNK
     Route: 051
     Dates: start: 20130102, end: 20130102
  2. TAXOTERE [Suspect]
     Active Substance: DOCETAXEL
     Indication: BREAST CANCER FEMALE
     Dosage: 20 ML, QW
     Route: 051
     Dates: start: 20121115, end: 20121115

REACTIONS (2)
  - Alopecia [Unknown]
  - Psychological trauma [Unknown]

NARRATIVE: CASE EVENT DATE: 2013
